FAERS Safety Report 5657916-8 (Version None)
Quarter: 2008Q1

REPORT INFORMATION
  Report Type: 
  Country: None (occurrence: None)
  Receive Date: 20080310
  Receipt Date: 20080229
  Transmission Date: 20080703
  Serious: Yes (Hospitalization, Disabling)
  Sender: FDA-Public Use
  Company Number: PHEH2008US02344

PATIENT
  Sex: Female

DRUGS (1)
  1. ZELNORM [Suspect]
     Indication: GASTROINTESTINAL DISORDER
     Dosage: 6 MG, UNK
     Route: 048
     Dates: start: 20050401, end: 20060201

REACTIONS (3)
  - BRAIN INJURY [None]
  - CEREBROVASCULAR ACCIDENT [None]
  - SPEECH REHABILITATION [None]
